FAERS Safety Report 11922264 (Version 1)
Quarter: 2016Q1

REPORT INFORMATION
  Report Type: Spontaneous
  Country: US (occurrence: US)
  Receive Date: 20160115
  Receipt Date: 20160115
  Transmission Date: 20160526
  Serious: Yes (Death)
  Sender: FDA-Public Use
  Company Number: US-LPDUSPRD-20160018

PATIENT
  Age: 52 Year
  Sex: Female

DRUGS (9)
  1. PROMETHAZINE [Concomitant]
     Active Substance: PROMETHAZINE\PROMETHAZINE HYDROCHLORIDE
     Dosage: UNKNOWN
     Route: 065
  2. FLUOXETINE [Suspect]
     Active Substance: FLUOXETINE HYDROCHLORIDE
     Dosage: UNKNOWN
     Route: 065
  3. PHENOBARBITAL. [Suspect]
     Active Substance: PHENOBARBITAL
     Dosage: UNKNOWN
     Route: 065
  4. CLONAZEPAM. [Concomitant]
     Active Substance: CLONAZEPAM
     Dosage: UNKNOWN
     Route: 065
  5. CARBON MONOXIDE [Suspect]
     Active Substance: CARBON MONOXIDE
     Dosage: UNKNOWN
     Route: 065
  6. NORFLUOXETINE [Suspect]
     Active Substance: NORFLUOXETINE
     Dosage: UNKNOWN
     Route: 065
  7. PHENYTOIN SODIUM INJECTION (40042-009-02) [Suspect]
     Active Substance: PHENYTOIN SODIUM
     Dosage: DOSE UNKNOWN
     Route: 065
  8. ETHANOL [Suspect]
     Active Substance: ALCOHOL
     Dosage: UNKNOWN
     Route: 065
  9. SKELAXIN [Suspect]
     Active Substance: METAXALONE
     Dosage: DOSE UNKNOWN
     Route: 065

REACTIONS (1)
  - Completed suicide [Fatal]
